FAERS Safety Report 7949896-7 (Version None)
Quarter: 2011Q4

REPORT INFORMATION
  Report Type: 
  Country: None (occurrence: None)
  Receive Date: 20111130
  Receipt Date: 20111128
  Transmission Date: 20120403
  Serious: Yes (Other)
  Sender: FDA-Public Use
  Company Number: US-PFIZER INC-2011270406

PATIENT
  Sex: Male
  Weight: 90.703 kg

DRUGS (14)
  1. NEURONTIN [Suspect]
     Indication: NEUROPATHY PERIPHERAL
     Dosage: 300 MG, 2X/DAY
     Route: 048
     Dates: start: 20110908, end: 20111029
  2. ISENTRESS [Concomitant]
     Indication: HIV TEST POSITIVE
  3. HYDROCODONE [Concomitant]
     Indication: PAIN
     Dosage: 325 MG, UNK
     Dates: start: 20110607
  4. FLUCONAZOLE [Concomitant]
     Dosage: UNK
  5. ISENTRESS [Concomitant]
     Indication: ACQUIRED IMMUNODEFICIENCY SYNDROME
     Dosage: UNK
     Dates: start: 20110719
  6. EPZICOM [Concomitant]
     Indication: ACQUIRED IMMUNODEFICIENCY SYNDROME
     Dosage: UNK
     Dates: start: 20110719
  7. LISINOPRIL [Concomitant]
     Dosage: UNK
  8. ACYCLOVIR [Concomitant]
     Indication: ACQUIRED IMMUNODEFICIENCY SYNDROME
     Dosage: UNK
     Dates: start: 20110607
  9. ACYCLOVIR [Concomitant]
     Indication: HERPES VIRUS INFECTION
  10. DIFLUCAN [Concomitant]
     Indication: CANDIDA TEST POSITIVE
     Dosage: UNK
     Dates: start: 20110607
  11. BACTIN [Concomitant]
     Dosage: UNK
     Dates: start: 20110607
  12. EPZICOM [Concomitant]
     Indication: HIV TEST POSITIVE
  13. VITAMIN D [Concomitant]
     Dosage: UNK
  14. TRIMETHOPRIM [Concomitant]
     Indication: INFECTION
     Dosage: UNK

REACTIONS (9)
  - DIZZINESS [None]
  - ARTHRALGIA [None]
  - ANXIETY [None]
  - FATIGUE [None]
  - ASTHENIA [None]
  - SUICIDAL IDEATION [None]
  - COORDINATION ABNORMAL [None]
  - EYE MOVEMENT DISORDER [None]
  - MOOD ALTERED [None]
